FAERS Safety Report 8425258-3 (Version None)
Quarter: 2012Q2

REPORT INFORMATION
  Report Type: 
  Country: None (occurrence: None)
  Receive Date: 20120605
  Receipt Date: 20120605
  Transmission Date: 20120825
  Serious: No
  Sender: FDA-Public Use
  Company Number: None

PATIENT
  Sex: Female

DRUGS (1)
  1. ACTOS [Suspect]
     Indication: ILL-DEFINED DISORDER
     Dosage: 1 DAILY FOR DIABETIS

REACTIONS (1)
  - BLINDNESS [None]
